FAERS Safety Report 7638004-8 (Version None)
Quarter: 2011Q3

REPORT INFORMATION
  Report Type: 
  Country: None (occurrence: None)
  Receive Date: 20110722
  Receipt Date: 20110722
  Transmission Date: 20111222
  Serious: Yes (Hospitalization)
  Sender: FDA-Public Use
  Company Number: None

PATIENT
  Sex: Female
  Weight: 94.3 kg

DRUGS (2)
  1. CARBOPLATIN [Suspect]
     Dosage: 357 MG
  2. TAXOL [Suspect]
     Dosage: 210 MG

REACTIONS (1)
  - BLOOD PHOSPHORUS DECREASED [None]
